FAERS Safety Report 23991411 (Version 1)
Quarter: 2024Q2

REPORT INFORMATION
  Report Type: Spontaneous
  Country: HU (occurrence: None)
  Receive Date: 20240619
  Receipt Date: 20240619
  Transmission Date: 20240716
  Serious: Yes (Hospitalization, Other)
  Sender: FDA-Public Use
  Company Number: 2024A139169

PATIENT
  Sex: Male

DRUGS (1)
  1. DAPAGLIFLOZIN [Suspect]
     Active Substance: DAPAGLIFLOZIN
     Route: 048

REACTIONS (23)
  - Illness [Unknown]
  - Appendicitis perforated [Unknown]
  - Device breakage [Unknown]
  - Pelvic fracture [Unknown]
  - Brain injury [Unknown]
  - Spinal cord injury [Unknown]
  - Pancreatitis [Unknown]
  - Peritonitis [Unknown]
  - Fall [Unknown]
  - Retinal disorder [Unknown]
  - Cardiac disorder [Unknown]
  - Coronavirus infection [Unknown]
  - Red blood cell sedimentation rate increased [Unknown]
  - Oedema [Unknown]
  - Breath sounds abnormal [Unknown]
  - Osteoporosis [Unknown]
  - Oedema peripheral [Unknown]
  - Dry skin [Unknown]
  - Micturition urgency [Unknown]
  - Renal disorder [Unknown]
  - Iron deficiency anaemia [Unknown]
  - Muscle spasms [Unknown]
  - Hypertonia [Unknown]
